FAERS Safety Report 13236866 (Version 3)
Quarter: 2017Q1

REPORT INFORMATION
  Report Type: Spontaneous
  Country: GB (occurrence: GB)
  Receive Date: 20170215
  Receipt Date: 20170313
  Transmission Date: 20170428
  Serious: Yes (Hospitalization, Other)
  Sender: FDA-Public Use
  Company Number: PHFR2016GB009362

PATIENT
  Age: 43 Year
  Sex: Male

DRUGS (5)
  1. DABRAFENIB [Suspect]
     Active Substance: DABRAFENIB
     Indication: METASTATIC MALIGNANT MELANOMA
     Route: 065
  2. DEXAMETHASONE. [Concomitant]
     Active Substance: DEXAMETHASONE
     Indication: PRODUCT USED FOR UNKNOWN INDICATION
     Dosage: 4 MG, QD
     Route: 065
  3. KEPPRA [Concomitant]
     Active Substance: LEVETIRACETAM
     Indication: PRODUCT USED FOR UNKNOWN INDICATION
     Route: 065
  4. TRAMETINIB [Suspect]
     Active Substance: TRAMETINIB
     Indication: METASTATIC MALIGNANT MELANOMA
     Dosage: UNK
     Route: 065
  5. OMEPRAZOLE. [Concomitant]
     Active Substance: OMEPRAZOLE
     Indication: PRODUCT USED FOR UNKNOWN INDICATION
     Dosage: 30 MG, UNK
     Route: 065

REACTIONS (38)
  - Renal tubular atrophy [Recovered/Resolved]
  - Granuloma [Unknown]
  - Platelet count increased [Recovered/Resolved]
  - Neutrophil count increased [Recovered/Resolved]
  - Haemoglobin decreased [Unknown]
  - Gamma-glutamyltransferase increased [Unknown]
  - Creatinine renal clearance increased [Recovered/Resolved]
  - Oedematous kidney [Recovered/Resolved]
  - Blood bicarbonate decreased [Recovered/Resolved]
  - Haematocrit decreased [Not Recovered/Not Resolved]
  - Platelet count increased [Recovered/Resolved]
  - Blood immunoglobulin M decreased [Unknown]
  - Tubulointerstitial nephritis [Recovered/Resolved]
  - Kidney fibrosis [Recovered/Resolved]
  - Nephropathy toxic [Unknown]
  - Blood chloride decreased [Recovered/Resolved]
  - Blood fibrinogen increased [Recovered/Resolved]
  - Blood bicarbonate increased [Unknown]
  - Blood chloride decreased [Unknown]
  - Blood potassium increased [Recovered/Resolved]
  - C-reactive protein increased [Recovering/Resolving]
  - Monocyte count increased [Recovered/Resolved]
  - Blood alkaline phosphatase increased [Recovered/Resolved]
  - Vomiting [Unknown]
  - Blood lactate dehydrogenase increased [Unknown]
  - Blood sodium decreased [Recovered/Resolved]
  - Blood urea increased [Recovering/Resolving]
  - Lymphocyte count decreased [Recovered/Resolved]
  - Red blood cell count decreased [Unknown]
  - Blood albumin decreased [Recovered/Resolved]
  - Nausea [Unknown]
  - Activated partial thromboplastin time prolonged [Unknown]
  - Blood cortisol decreased [Unknown]
  - Renal impairment [Recovered/Resolved]
  - Glomerular filtration rate decreased [Unknown]
  - Blood potassium increased [Recovered/Resolved]
  - Blood immunoglobulin A decreased [Unknown]
  - Blood albumin decreased [Recovered/Resolved]

NARRATIVE: CASE EVENT DATE: 20161108
